FAERS Safety Report 19123902 (Version 1)
Quarter: 2021Q2

REPORT INFORMATION
  Report Type: Spontaneous
  Country: EG (occurrence: EG)
  Receive Date: 20210413
  Receipt Date: 20210413
  Transmission Date: 20210717
  Serious: Yes (Disabling, Other)
  Sender: FDA-Public Use
  Company Number: EG-ABBVIE-21K-048-3848081-00

PATIENT
  Age: 50 Year
  Sex: Male

DRUGS (8)
  1. ALUVIA 200/50 [Suspect]
     Active Substance: LOPINAVIR\RITONAVIR
     Indication: COVID-19 TREATMENT
     Dosage: 2 TABLETS /12 HR  FOR 10 DAYS
     Route: 048
     Dates: start: 20210126, end: 20210127
  2. VITAMIN C [Concomitant]
     Active Substance: ASCORBIC ACID
     Indication: VITAMIN SUPPLEMENTATION
     Route: 048
  3. HEPAXANE [Concomitant]
     Active Substance: ENOXAPARIN SODIUM
     Indication: COVID-19 TREATMENT
     Route: 042
  4. ZINC. [Concomitant]
     Active Substance: ZINC
     Indication: COVID-19
  5. INSULIN [Concomitant]
     Active Substance: INSULIN NOS
     Indication: COVID-19 TREATMENT
  6. MEROSTARKYL [Concomitant]
     Indication: COVID-19 TREATMENT
     Route: 042
  7. CEFAXONE [Concomitant]
     Active Substance: CEFTRIAXONE
     Indication: COVID-19 TREATMENT
     Route: 042
  8. PARAMOL [Concomitant]
     Indication: COVID-19 TREATMENT
     Route: 048

REACTIONS (5)
  - Dysphagia [Recovered/Resolved]
  - Speech disorder [Unknown]
  - Oral mucosal eruption [Recovered/Resolved]
  - Swelling face [Recovered/Resolved]
  - Feeding disorder [Unknown]

NARRATIVE: CASE EVENT DATE: 2021
